FAERS Safety Report 12885711 (Version 2)
Quarter: 2016Q4

REPORT INFORMATION
  Report Type: Report from Study
  Country: CA (occurrence: CA)
  Receive Date: 20161026
  Receipt Date: 20161111
  Transmission Date: 20170207
  Serious: Yes (Other)
  Sender: FDA-Public Use
  Company Number: PHHY2015CA139970

PATIENT
  Sex: Female

DRUGS (5)
  1. TAFINLAR [Suspect]
     Active Substance: DABRAFENIB MESYLATE
     Dosage: 250 MG, QD (150 MG IN THE MORNING AND 100 MG IN EVENING)
     Route: 048
  2. TAFINLAR [Suspect]
     Active Substance: DABRAFENIB MESYLATE
     Dosage: 200 MG, QD (TAF 150MG AM + 50MG HS)
     Route: 048
     Dates: end: 20161019
  3. TAFINLAR [Suspect]
     Active Substance: DABRAFENIB MESYLATE
     Indication: METASTATIC MALIGNANT MELANOMA
     Dosage: 300 MG, QD
     Route: 048
     Dates: start: 20150630
  4. TAFINLAR [Suspect]
     Active Substance: DABRAFENIB MESYLATE
     Dosage: 300 MG, QD
     Route: 048
  5. MEKINIST [Suspect]
     Active Substance: TRAMETINIB DIMETHYL SULFOXIDE
     Indication: METASTATIC MALIGNANT MELANOMA
     Dosage: 2 MG, QD
     Route: 048
     Dates: start: 20151028

REACTIONS (25)
  - Swelling [Unknown]
  - Panic attack [Unknown]
  - Weight decreased [Unknown]
  - Anxiety [Unknown]
  - Back pain [Unknown]
  - Chills [Unknown]
  - Decreased appetite [Recovering/Resolving]
  - Oropharyngeal pain [Unknown]
  - Skin discolouration [Unknown]
  - Pyrexia [Unknown]
  - Acne [Recovering/Resolving]
  - Myalgia [Unknown]
  - Pain in extremity [Unknown]
  - Gait disturbance [Unknown]
  - Insomnia [Unknown]
  - Burning sensation [Unknown]
  - Chills [Recovered/Resolved]
  - Vomiting [Unknown]
  - Nasopharyngitis [Unknown]
  - Cough [Unknown]
  - Tremor [Unknown]
  - Dyspepsia [Unknown]
  - Hyperkeratosis [Unknown]
  - Erythema [Unknown]
  - Lower respiratory tract infection [Unknown]
